FAERS Safety Report 6626753-X (Version None)
Quarter: 2010Q1

REPORT INFORMATION
  Report Type: 
  Country: None (occurrence: None)
  Receive Date: 20100311
  Receipt Date: 20100302
  Transmission Date: 20100710
  Serious: Yes (Hospitalization, Other)
  Sender: FDA-Public Use
  Company Number: US-BIOGENIDEC-2010BI007160

PATIENT
  Age: 49 Year
  Sex: Male

DRUGS (2)
  1. TYSABRI [Suspect]
     Indication: MULTIPLE SCLEROSIS
     Route: 042
     Dates: start: 20070822, end: 20070913
  2. TYSABRI [Suspect]
     Route: 042
     Dates: start: 20090223, end: 20090828

REACTIONS (2)
  - HEPATITIS C [None]
  - PERIPHERAL ARTERIAL OCCLUSIVE DISEASE [None]
